FAERS Safety Report 5158603-5 (Version None)
Quarter: 2006Q4

REPORT INFORMATION
  Report Type: 
  Country: None (occurrence: None)
  Receive Date: 20061128
  Receipt Date: 20031112
  Transmission Date: 20070319
  Serious: Yes (Hospitalization)
  Sender: FDA-Public Use
  Company Number: FR-MERCK-0311FRA00027

PATIENT
  Age: 72 Year
  Sex: Male

DRUGS (7)
  1. STROMECTOL [Suspect]
     Indication: ACARODERMATITIS
     Route: 048
     Dates: start: 20031007, end: 20031007
  2. BENZYL BENZOATE [Concomitant]
     Indication: ACARODERMATITIS
     Route: 065
  3. FUROSEMIDE [Concomitant]
     Indication: HYPERTENSION
     Route: 048
     Dates: start: 19990101
  4. OMEPRAZOLE [Concomitant]
     Route: 048
     Dates: start: 19990101
  5. POTASSIUM CHLORIDE [Concomitant]
     Route: 048
     Dates: start: 19990101
  6. ASPIRIN [Concomitant]
     Indication: THROMBOSIS PROPHYLAXIS
     Route: 048
     Dates: start: 19990101
  7. LEVOTHYROXINE SODIUM [Concomitant]
     Indication: HYPOTHYROIDISM
     Route: 048
     Dates: start: 20030401

REACTIONS (1)
  - HEPATITIS [None]
